FAERS Safety Report 7212341-3 (Version None)
Quarter: 2011Q1

REPORT INFORMATION
  Report Type: 
  Country: None (occurrence: None)
  Receive Date: 20110106
  Receipt Date: 20101231
  Transmission Date: 20110831
  Serious: Yes (Life-Threatening, Hospitalization, Other)
  Sender: FDA-Public Use
  Company Number: IT-BRISTOL-MYERS SQUIBB COMPANY-15458383

PATIENT
  Age: 47 Year
  Sex: Male

DRUGS (1)
  1. METFORMIN HCL [Suspect]
     Indication: TYPE 2 DIABETES MELLITUS

REACTIONS (11)
  - ECONOMIC PROBLEM [None]
  - BUNDLE BRANCH BLOCK RIGHT [None]
  - RENAL FAILURE ACUTE [None]
  - SINUS TACHYCARDIA [None]
  - CARDIAC ARREST [None]
  - DEPRESSION [None]
  - DEHYDRATION [None]
  - LACTIC ACIDOSIS [None]
  - DIARRHOEA [None]
  - VOMITING [None]
  - NO THERAPEUTIC RESPONSE [None]
